FAERS Safety Report 9048148 (Version 1)
Quarter: 2013Q1

REPORT INFORMATION
  Report Type: Report from Study
  Country: JP (occurrence: JP)
  Receive Date: 20130204
  Receipt Date: 20130204
  Transmission Date: 20140127
  Serious: Yes (Hospitalization, Other)
  Sender: FDA-Public Use
  Company Number: JP-009507513-2012SP013606

PATIENT
  Age: 58 Year
  Sex: Female
  Weight: 39 kg

DRUGS (27)
  1. PEGINTRON [Suspect]
     Indication: CHRONIC HEPATITIS C
     Dosage: 1.5 MICROGRAM PER KILOGRAM, QW
     Route: 058
     Dates: start: 20120301, end: 20120305
  2. REBETOL [Suspect]
     Indication: CHRONIC HEPATITIS C
     Dosage: 400 MG, QD
     Route: 048
     Dates: start: 20120301, end: 20120305
  3. TELAVIC [Suspect]
     Indication: CHRONIC HEPATITIS C
     Dosage: 750 MG, TID
     Route: 048
     Dates: start: 20120301, end: 20120305
  4. GASTER D [Concomitant]
     Indication: PROPHYLAXIS
     Dosage: 40 MG, QD
     Route: 048
  5. THYRADIN-S [Concomitant]
     Indication: AUTOIMMUNE THYROIDITIS
     Dosage: 25 MICROGRAM, QD
     Route: 048
  6. DIOVAN [Concomitant]
     Indication: HYPERTENSION
     Dosage: 160 MG, QD
     Route: 048
  7. BACILLUS PUMILUS (+) CLOSTRIDIUM BUTYRICUM (+) ENTEROCOCCUS FAECIUM [Concomitant]
     Indication: PROPHYLAXIS
     Dosage: 3 TA , DAILY DOSAGE UNKNOWN
     Route: 048
  8. FOIPAN [Concomitant]
     Indication: PANCREATITIS CHRONIC
     Dosage: 300 MG, QD
     Route: 048
  9. FERROMIA [Concomitant]
     Indication: PROPHYLAXIS
     Dosage: 50 MG, QD
     Route: 048
  10. MYSLEE [Concomitant]
     Indication: PROPHYLAXIS
     Dosage: 10 MG, QD
     Route: 048
  11. MUCOSTA [Concomitant]
     Indication: PROPHYLAXIS
     Dosage: 300 MG, QD
     Route: 048
  12. MEDICON (DEXTROMETHORPHAN HYDROBROMIDE) [Concomitant]
     Indication: ASTHMA
     Dosage: 45 MG, QD
     Route: 048
  13. METHYCOBAL [Concomitant]
     Indication: PROPHYLAXIS
     Dosage: 1500 MICROGRAM, QD
     Route: 048
  14. ROZAGOOD [Concomitant]
     Indication: HYPERTENSION
     Dosage: TOTAL DAILY DOSE: 150 (DOSAGE FORM)
     Route: 048
  15. THEOLONG [Concomitant]
     Indication: ASTHMA
     Dosage: 100 MG, QD
     Route: 048
     Dates: end: 20120318
  16. MAGMITT [Concomitant]
     Indication: PROPHYLAXIS
     Dosage: 990 MG, QD
     Route: 048
     Dates: end: 20120318
  17. ZYLORIC [Concomitant]
     Indication: PROPHYLAXIS
     Dosage: 300 MG, QD
     Route: 048
     Dates: start: 20120301, end: 20120305
  18. ZYLORIC [Concomitant]
     Dosage: 100 MG, QD
     Route: 048
     Dates: start: 20120306, end: 20120312
  19. ZYLORIC [Concomitant]
     Dosage: 200 MG, QD
     Route: 048
     Dates: start: 20120313, end: 20120319
  20. ZYLORIC [Concomitant]
     Dosage: 100 MG, QD
     Route: 048
     Dates: start: 20120319
  21. TAKEPRON [Concomitant]
     Indication: PROPHYLAXIS
     Dosage: 15 MG, QD
     Route: 048
     Dates: start: 20120306, end: 20120312
  22. ALLELOCK [Concomitant]
     Indication: PRODUCT USED FOR UNKNOWN INDICATION
     Dosage: 10 MG, QD
     Route: 048
     Dates: start: 20120313
  23. THEO-DUR [Concomitant]
     Indication: ASTHMA
     Dosage: 200 MG, QD
     Route: 048
     Dates: start: 20120306
  24. SOLDEM 1 [Concomitant]
     Dosage: 500 ML, QD
     Route: 042
     Dates: start: 20120305, end: 20120306
  25. ELECTROLYTES (UNSPECIFIED) (+) SODIUM LACTATE [Concomitant]
     Dosage: 500 ML, QD
     Route: 042
     Dates: start: 20120305
  26. VITAMEDIN [Concomitant]
     Dosage: 1 VIAL PER DAY
     Route: 042
     Dates: start: 20120306, end: 20120309
  27. ISOTONIC SODIUM CHLORIDE SOLUTION PL FUSO [Concomitant]
     Dosage: ISOTONIC SODIUM CHLORIDE SOLUTION
     Route: 042
     Dates: start: 20120306, end: 20120309

REACTIONS (6)
  - Blood creatinine increased [Recovering/Resolving]
  - Blood urea increased [Recovering/Resolving]
  - C-reactive protein increased [Recovered/Resolved]
  - Malaise [Recovered/Resolved]
  - Pyrexia [Recovered/Resolved]
  - Vomiting [Recovered/Resolved]
